FAERS Safety Report 4365721-8 (Version None)
Quarter: 2004Q2

REPORT INFORMATION
  Report Type: 
  Country: None (occurrence: None)
  Receive Date: 20040520
  Receipt Date: 20040511
  Transmission Date: 20050107
  Serious: Yes (Death, Other)
  Sender: FDA-Public Use
  Company Number: 2004032003

PATIENT
  Sex: Female

DRUGS (1)
  1. NEURONTIN [Suspect]
     Indication: NEUROPATHIC PAIN
     Dosage: 150 MG (DAILY), ORAL
     Route: 048
     Dates: start: 20040301, end: 20040501

REACTIONS (3)
  - CEREBROVASCULAR ACCIDENT [None]
  - FEMUR FRACTURE [None]
  - MEDICATION ERROR [None]
